FAERS Safety Report 16199387 (Version 2)
Quarter: 2019Q2

REPORT INFORMATION
  Report Type: Spontaneous
  Country: RU (occurrence: RU)
  Receive Date: 20190415
  Receipt Date: 20190415
  Transmission Date: 20190711
  Serious: Yes (Hospitalization, Other)
  Sender: FDA-Public Use
  Company Number: RU-BAYER-2019-075034

PATIENT
  Age: 13 Year
  Sex: Female

DRUGS (1)
  1. ULTRAVIST [Suspect]
     Active Substance: IOPROMIDE
     Dosage: UNK

REACTIONS (11)
  - Flushing [None]
  - Breath holding [None]
  - Blood pressure decreased [None]
  - Cyanosis [None]
  - Loss of consciousness [None]
  - Loss of consciousness [Recovered/Resolved]
  - Injection site discolouration [None]
  - Injection site erythema [None]
  - Breath holding [None]
  - Blood pressure decreased [None]
  - Anaphylactic shock [None]

NARRATIVE: CASE EVENT DATE: 20190412
